FAERS Safety Report 19053455 (Version 1)
Quarter: 2021Q1

REPORT INFORMATION
  Report Type: Spontaneous
  Country: SE (occurrence: SE)
  Receive Date: 20210324
  Receipt Date: 20210324
  Transmission Date: 20210420
  Serious: Yes (Life-Threatening)
  Sender: FDA-Public Use
  Company Number: SE-TEVA-2021-SE-1892637

PATIENT
  Age: 84 Year
  Sex: Female

DRUGS (3)
  1. METOPROLOL. [Suspect]
     Active Substance: METOPROLOL
     Indication: TACHYCARDIA
     Dosage: 50 MG 2 / DAY, SEE NARRATIVE
     Route: 048
     Dates: start: 20201119
  2. METOTAB 2,5 MG TABLETT [Suspect]
     Active Substance: METHOTREXATE SODIUM
     Indication: POLYMYALGIA RHEUMATICA
     Dosage: PROBABLY 1 / DAY SINCE NOVEMBER 2020 AND 2 / DAY SINCE DECEMBER 2020 / EARLY JANUARY 2021.
     Route: 048
     Dates: start: 202011
  3. METOPROLOL. [Suspect]
     Active Substance: METOPROLOL
     Indication: HYPERTENSION

REACTIONS (10)
  - Renal impairment [Recovered/Resolved]
  - Product name confusion [Recovered/Resolved]
  - Accidental overdose [Recovered/Resolved]
  - Dysphagia [Recovered/Resolved]
  - Mucosal inflammation [Recovered/Resolved]
  - Diarrhoea [Recovered/Resolved]
  - Pyrexia [Recovered/Resolved]
  - Fatigue [Recovered/Resolved]
  - Myelosuppression [Recovered/Resolved]
  - Wrong product administered [Recovered/Resolved]

NARRATIVE: CASE EVENT DATE: 202101
